FAERS Safety Report 7646482-3 (Version None)
Quarter: 2011Q3

REPORT INFORMATION
  Report Type: 
  Country: None (occurrence: None)
  Receive Date: 20110801
  Receipt Date: 20110721
  Transmission Date: 20111222
  Serious: Yes (Other)
  Sender: FDA-Public Use
  Company Number: US-BAYER-2010-007955

PATIENT
  Age: 29 Year
  Sex: Female
  Weight: 61 kg

DRUGS (9)
  1. YASMIN [Suspect]
     Dosage: UNK
     Dates: start: 20051009, end: 20060502
  2. LEVOTHYROXINE SODIUM [Concomitant]
     Indication: HYPOTHYROIDISM
     Dosage: UNK
  3. IBUPROFEN [Concomitant]
     Indication: PAIN
  4. TYLENOL-500 [Concomitant]
     Indication: PAIN
  5. SYNTHROID [Concomitant]
     Indication: HYPOTHYROIDISM
  6. BUTALBITAL [Concomitant]
     Indication: MIGRAINE
  7. FLEXERIL [Concomitant]
     Indication: MUSCLE SPASMS
  8. DROSPIRENONE AND ETHINYL ESTRADIOL [Suspect]
     Dosage: UNK
     Dates: start: 20081204, end: 20081228
  9. ALPRAZOLAM [Concomitant]
     Indication: ANXIETY

REACTIONS (3)
  - BILIARY COLIC [None]
  - GALLBLADDER DISORDER [None]
  - PAIN [None]
